FAERS Safety Report 17912048 (Version 2)
Quarter: 2020Q2

REPORT INFORMATION
  Report Type: Report from Study
  Country: IT (occurrence: IT)
  Receive Date: 20200618
  Receipt Date: 20200626
  Transmission Date: 20200714
  Serious: Yes (Death)
  Sender: FDA-Public Use
  Company Number: IT-MYLANLABS-2020M1057178

PATIENT
  Age: 92 Year
  Sex: Female

DRUGS (2)
  1. ACETYLSALICYLIC ACID [Interacting]
     Active Substance: ASPIRIN
     Indication: CORONARY ARTERY DISEASE
     Dosage: 100 MILLIGRAM, QD
     Route: 048
     Dates: start: 20140525
  2. TICLOPIDINE [Suspect]
     Active Substance: TICLOPIDINE
     Indication: CORONARY ARTERY DISEASE
     Dosage: 250 MILLIGRAM, QD
     Route: 048
     Dates: start: 20140525

REACTIONS (2)
  - Subdural haematoma [Fatal]
  - Drug interaction [Fatal]

NARRATIVE: CASE EVENT DATE: 20200319
